FAERS Safety Report 5570060-3 (Version None)
Quarter: 2007Q4

REPORT INFORMATION
  Report Type: 
  Country: None (occurrence: None)
  Receive Date: 20071217
  Receipt Date: 20071210
  Transmission Date: 20080405
  Serious: Yes (Life-Threatening, Hospitalization)
  Sender: FDA-Public Use
  Company Number: 2007SP021881

PATIENT
  Age: 56 Year
  Sex: Male

DRUGS (9)
  1. REBETOL [Suspect]
     Indication: HEPATITIS C
     Dosage: 600 MG;QW; PO; 1200 MG;QW;PO; 200 MG;TIW; PO; 200 MG;BIW;PO
     Route: 048
     Dates: start: 20070201, end: 20070401
  2. REBETOL [Suspect]
     Indication: HEPATITIS C
     Dosage: 600 MG;QW; PO; 1200 MG;QW;PO; 200 MG;TIW; PO; 200 MG;BIW;PO
     Route: 048
     Dates: start: 20070401, end: 20070801
  3. REBETOL [Suspect]
     Indication: HEPATITIS C
     Dosage: 600 MG;QW; PO; 1200 MG;QW;PO; 200 MG;TIW; PO; 200 MG;BIW;PO
     Route: 048
     Dates: start: 20070801, end: 20070901
  4. REBETOL [Suspect]
     Indication: HEPATITIS C
     Dosage: 600 MG;QW; PO; 1200 MG;QW;PO; 200 MG;TIW; PO; 200 MG;BIW;PO
     Route: 048
     Dates: start: 20070901, end: 20070924
  5. PEGASYS [Suspect]
     Indication: HEPATITIS C
     Dosage: 135 MCG;QW;SC
     Route: 058
     Dates: start: 20070201, end: 20070924
  6. KARDEGIC [Concomitant]
  7. TAREG [Concomitant]
  8. CELECTOL [Concomitant]
  9. CALTRATE [Concomitant]

REACTIONS (20)
  - ANAEMIA [None]
  - ANOREXIA [None]
  - ASTERIXIS [None]
  - BLOOD CREATININE INCREASED [None]
  - CARDIAC DISORDER [None]
  - CEREBELLAR ATROPHY [None]
  - CEREBRAL DISORDER [None]
  - CONFUSIONAL STATE [None]
  - DISTURBANCE IN ATTENTION [None]
  - ELECTROENCEPHALOGRAM ABNORMAL [None]
  - ERYTHROBLASTOSIS [None]
  - FATIGUE [None]
  - HAEMOLYSIS [None]
  - ISCHAEMIA [None]
  - MULTI-ORGAN DISORDER [None]
  - NERVOUS SYSTEM DISORDER [None]
  - RED BLOOD CELL SCHISTOCYTES PRESENT [None]
  - RESPIRATORY DISORDER [None]
  - THROMBOTIC MICROANGIOPATHY [None]
  - WEIGHT DECREASED [None]
